FAERS Safety Report 9562164 (Version 1)
Quarter: 2013Q3

REPORT INFORMATION
  Report Type: Spontaneous
  Country: US (occurrence: US)
  Receive Date: 20130927
  Receipt Date: 20130927
  Transmission Date: 20140515
  Serious: Yes (Other)
  Sender: FDA-Public Use
  Company Number: US-PFIZER INC-2013277087

PATIENT
  Age: 40 Year
  Sex: Female
  Weight: 58.96 kg

DRUGS (1)
  1. DILANTIN [Suspect]
     Indication: GRAND MAL CONVULSION
     Dosage: 300 MG (100 MG THREE CAPSULES) , 2X/DAY
     Dates: start: 201103

REACTIONS (3)
  - Partial seizures [Unknown]
  - Grand mal convulsion [Unknown]
  - Headache [Unknown]
